FAERS Safety Report 18751105 (Version 1)
Quarter: 2021Q1

REPORT INFORMATION
  Report Type: Spontaneous
  Country: DK (occurrence: DK)
  Receive Date: 20210118
  Receipt Date: 20210118
  Transmission Date: 20210419
  Serious: Yes (Hospitalization)
  Sender: FDA-Public Use
  Company Number: DK-TEVA-2021-DK-1868931

PATIENT
  Age: 81 Year
  Sex: Male

DRUGS (3)
  1. COMIRNATY [Interacting]
     Active Substance: TOZINAMERAN
     Indication: COVID-19 IMMUNISATION
     Dosage: 1 DOSAGE FORMS
     Route: 030
     Dates: start: 20201227
  2. TRAMADOL ^KRKA^ [Interacting]
     Active Substance: TRAMADOL HYDROCHLORIDE
     Indication: MUSCULOSKELETAL CHEST PAIN
     Dosage: STRENGTH: 50 MG?DOSE: WHEN NECESSARY, MAX 4 TIMES DAILY
     Route: 048
     Dates: start: 20201221, end: 20201229
  3. RELTEBON DEPOT [Suspect]
     Active Substance: OXYCODONE HYDROCHLORIDE
     Indication: MUSCULOSKELETAL CHEST PAIN
     Dosage: DOSAGE:  MAX 2 DAILY, ?STRENGTH: 5 MG
     Route: 048
     Dates: start: 20201229, end: 20201230

REACTIONS (3)
  - Confusional state [Recovered/Resolved]
  - Drug interaction [Unknown]
  - Thinking abnormal [Recovered/Resolved]

NARRATIVE: CASE EVENT DATE: 20201227
